FAERS Safety Report 12159472 (Version 3)
Quarter: 2016Q1

REPORT INFORMATION
  Report Type: Spontaneous
  Country: None (occurrence: RU)
  Receive Date: 20160308
  Receipt Date: 20160323
  Transmission Date: 20160526
  Serious: Yes (Other)
  Sender: FDA-Public Use
  Company Number: RU-MERCK KGAA-1048799

PATIENT

DRUGS (1)
  1. NOVOTHYROX [Suspect]
     Active Substance: LEVOTHYROXINE SODIUM

REACTIONS (6)
  - Lactose intolerance [None]
  - Hormone level abnormal [None]
  - Abdominal pain [None]
  - Gastritis [None]
  - Fibroadenoma of breast [None]
  - Abdominal discomfort [None]
